FAERS Safety Report 5719595-0 (Version None)
Quarter: 2008Q2

REPORT INFORMATION
  Report Type: 
  Country: None (occurrence: None)
  Receive Date: 20080424
  Receipt Date: 20080417
  Transmission Date: 20081010
  Serious: Yes (Other)
  Sender: FDA-Public Use
  Company Number: A0723521A

PATIENT
  Age: 41 Year
  Sex: Male

DRUGS (1)
  1. METHYLCELLULOSE (FORMULATION UNKNOWN) (METHYLCELLULOSE) [Suspect]
     Indication: DRUG USE FOR UNKNOWN INDICATION

REACTIONS (3)
  - ASTHENIA [None]
  - FEELING ABNORMAL [None]
  - HYPOGLYCAEMIA [None]
